FAERS Safety Report 13544534 (Version 1)
Quarter: 2017Q2

REPORT INFORMATION
  Report Type: Spontaneous
  Country: CN (occurrence: CN)
  Receive Date: 20170515
  Receipt Date: 20170515
  Transmission Date: 20170830
  Serious: Yes (Other)
  Sender: FDA-Public Use
  Company Number: CN-MYLANLABS-2017M1028182

PATIENT

DRUGS (6)
  1. BIFONAZOLE [Concomitant]
     Active Substance: BIFONAZOLE
     Indication: BALANITIS CANDIDA
  2. BIFONAZOLE [Concomitant]
     Active Substance: BIFONAZOLE
     Indication: BALANOPOSTHITIS
     Route: 061
  3. FLUCONAZOLE. [Suspect]
     Active Substance: FLUCONAZOLE
     Indication: BALANITIS CANDIDA
     Dosage: 150 MG/DAY
     Route: 065
  4. FLUCONAZOLE. [Suspect]
     Active Substance: FLUCONAZOLE
     Indication: BALANITIS CANDIDA
  5. TERBINAFINE. [Suspect]
     Active Substance: TERBINAFINE
     Indication: BALANOPOSTHITIS
     Dosage: 250MG/DAY
     Route: 048
     Dates: start: 20131107, end: 20131207
  6. TERBINAFINE. [Suspect]
     Active Substance: TERBINAFINE
     Indication: BALANITIS CANDIDA

REACTIONS (1)
  - Pathogen resistance [Unknown]
